FAERS Safety Report 23931414 (Version 1)
Quarter: 2024Q2

REPORT INFORMATION
  Report Type: Spontaneous
  Country: US (occurrence: US)
  Receive Date: 20240603
  Receipt Date: 20240603
  Transmission Date: 20240716
  Serious: Yes (Life-Threatening, Hospitalization)
  Sender: FDA-Public Use
  Company Number: US-Nexus Pharma-000270

PATIENT
  Age: 22 Year
  Sex: Male
  Weight: 136 kg

DRUGS (6)
  1. LEVETIRACETAM [Suspect]
     Active Substance: LEVETIRACETAM
     Indication: Generalised tonic-clonic seizure
     Dosage: LOADED WITH INTRAVENOUS 4000 MG OF LEVETIRACETAM (30 MG/KG)
     Route: 042
  2. BRIVARACETAM [Suspect]
     Active Substance: BRIVARACETAM
     Indication: Status epilepticus
     Route: 042
  3. PROPOFOL [Concomitant]
     Active Substance: PROPOFOL
     Indication: Anaesthesia
  4. MIDAZOLAM [Concomitant]
     Active Substance: MIDAZOLAM
     Indication: Anaesthesia
  5. LEVETIRACETAM [Suspect]
     Active Substance: LEVETIRACETAM
     Indication: Status epilepticus
     Dosage: LOADED WITH INTRAVENOUS 4000 MG OF LEVETIRACETAM (30 MG/KG)
     Route: 042
  6. BRIVARACETAM [Suspect]
     Active Substance: BRIVARACETAM
     Indication: Generalised tonic-clonic seizure
     Route: 042

REACTIONS (3)
  - Nephropathy [Recovered/Resolved]
  - Rhabdomyolysis [Recovered/Resolved]
  - Acute kidney injury [Recovered/Resolved]
